FAERS Safety Report 10081640 (Version 1)
Quarter: 2014Q2

REPORT INFORMATION
  Report Type: Spontaneous
  Country: GB (occurrence: None)
  Receive Date: 20140414
  Receipt Date: 20140414
  Transmission Date: 20141212
  Serious: Yes (Other)
  Sender: FDA-Public Use
  Company Number: 2280749

PATIENT
  Age: 47 Year
  Sex: Female

DRUGS (7)
  1. (MEROPENEM) [Suspect]
     Indication: PRODUCT USED FOR UNKNOWN INDICATION
     Dates: start: 20140317, end: 20140319
  2. (CARBOCISTEINE) [Concomitant]
  3. (DIAZEPAM) [Concomitant]
  4. (MONTELUKAST) [Concomitant]
  5. (NEFOPAM) [Concomitant]
  6. (OXYBUTYNIN) [Concomitant]
  7. (TEMAZEPAM) [Concomitant]

REACTIONS (7)
  - Wheezing [None]
  - Hypoxia [None]
  - Peripheral swelling [None]
  - Urticaria [None]
  - Pruritus [None]
  - Peripheral swelling [None]
  - Dyspnoea [None]
